FAERS Safety Report 8384674 (Version 2)
Quarter: 2013Q2

REPORT INFORMATION
  Report Type: Spontaneous
  Country: US (occurrence: None)
  Receive Date: 20111221
  Receipt Date: 20121227
  Transmission Date: 20140414
  Serious: Yes (Other)
  Sender: FDA-Public Use
  Company Number: PHHY2011US67911

PATIENT
  Age: 85 Year
  Sex: Female

DRUGS (1)
  1. EXJADE [Suspect]
     Dosage: 750 MG, QD, ORAL
     Route: 048

REACTIONS (6)
  - RENAL DISORDER [None]
  - DRUG INTOLERANCE [None]
  - DRUG INEFFECTIVE [None]
  - Serum ferritin increased [None]
  - Blood creatine increased [None]
  - Glomerular filtration rate decreased [None]
